FAERS Safety Report 9764309 (Version 1)
Quarter: 2013Q4

REPORT INFORMATION
  Report Type: Spontaneous
  Country: PT (occurrence: PT)
  Receive Date: 20131217
  Receipt Date: 20131217
  Transmission Date: 20140711
  Serious: Yes (Other)
  Sender: FDA-Public Use
  Company Number: 2012SP000062

PATIENT
  Age: 79 Year
  Sex: Female

DRUGS (3)
  1. VANCOMYCIN [Suspect]
     Indication: NOSOCOMIAL INFECTION
  2. VALPROATE SODIUM [Suspect]
     Indication: NOSOCOMIAL INFECTION
  3. MEROPENEM [Concomitant]

REACTIONS (1)
  - Toxic epidermal necrolysis [Recovered/Resolved]
